FAERS Safety Report 25205581 (Version 1)
Quarter: 2025Q2

REPORT INFORMATION
  Report Type: Spontaneous
  Country: US (occurrence: US)
  Receive Date: 20250417
  Receipt Date: 20250417
  Transmission Date: 20250717
  Serious: No
  Sender: CIPLA
  Company Number: US-CIPLA LTD.-2025US04341

PATIENT

DRUGS (10)
  1. SAJAZIR [Suspect]
     Active Substance: ICATIBANT ACETATE
     Indication: Complement factor abnormal
     Route: 058
  2. ESTRACE [Concomitant]
     Active Substance: ESTRADIOL
     Indication: Product used for unknown indication
     Route: 065
  3. TRIAMCINOLONE ACETONIDE [Concomitant]
     Active Substance: TRIAMCINOLONE ACETONIDE
     Indication: Product used for unknown indication
     Route: 065
  4. ORLADEYO [Concomitant]
     Active Substance: BEROTRALSTAT HYDROCHLORIDE
     Indication: Product used for unknown indication
     Route: 065
  5. VITAMIN B COMPLEX [Concomitant]
     Active Substance: CYANOCOBALAMIN\DEXPANTHENOL\NIACINAMIDE\PYRIDOXINE HYDROCHLORIDE\RIBOFLAVIN 5^-PHOSPHATE SODIUM\THIA
     Indication: Product used for unknown indication
     Route: 065
  6. LORATADINE [Concomitant]
     Active Substance: LORATADINE
     Indication: Product used for unknown indication
     Route: 065
  7. VITAMIN D3 [Concomitant]
     Active Substance: CHOLECALCIFEROL
     Indication: Product used for unknown indication
     Route: 065
  8. HYDROCHLOROTHIAZIDE [Concomitant]
     Active Substance: HYDROCHLOROTHIAZIDE
     Indication: Product used for unknown indication
     Route: 065
  9. LUTEIN [Concomitant]
     Active Substance: LUTEIN
     Indication: Product used for unknown indication
     Route: 065
  10. ASCORBIC ACID [Concomitant]
     Active Substance: ASCORBIC ACID
     Indication: Product used for unknown indication
     Route: 065

REACTIONS (3)
  - Lip dry [Unknown]
  - Lip disorder [Unknown]
  - Lip exfoliation [Unknown]
